FAERS Safety Report 5944073-3 (Version None)
Quarter: 2008Q4

REPORT INFORMATION
  Report Type: 
  Country: None (occurrence: None)
  Receive Date: 20081106
  Receipt Date: 20081027
  Transmission Date: 20090506
  Serious: Yes (Other)
  Sender: FDA-Public Use
  Company Number: FR-ABBOTT-08P-056-0482138-00

PATIENT
  Age: 45 Year
  Sex: Female

DRUGS (5)
  1. HUMIRA [Suspect]
     Indication: PSORIATIC ARTHROPATHY
     Route: 058
     Dates: start: 20080101, end: 20080801
  2. HUMIRA [Suspect]
     Dates: start: 20080801, end: 20081008
  3. KEBUZONE [Concomitant]
     Indication: PAIN
     Dates: start: 20080801
  4. MORPHINE SULFATE INJ [Concomitant]
     Indication: PAIN
     Dates: start: 20080801
  5. INDOMETACID [Concomitant]
     Indication: DRUG USE FOR UNKNOWN INDICATION
     Route: 048

REACTIONS (9)
  - BALANCE DISORDER [None]
  - CEREBRAL VENOUS THROMBOSIS [None]
  - DIPLOPIA [None]
  - DIZZINESS [None]
  - DRUG INEFFECTIVE [None]
  - MALAISE [None]
  - PAIN [None]
  - SOMNOLENCE [None]
  - TINNITUS [None]
